FAERS Safety Report 10225334 (Version 1)
Quarter: 2014Q2

REPORT INFORMATION
  Report Type: Spontaneous
  Country: BE (occurrence: BE)
  Receive Date: 20140609
  Receipt Date: 20140609
  Transmission Date: 20141212
  Serious: Yes (Other)
  Sender: FDA-Public Use
  Company Number: BE-JNJFOC-20140601272

PATIENT
  Age: 80 Year
  Sex: Male

DRUGS (3)
  1. RIVAROXABAN [Suspect]
     Indication: PULMONARY EMBOLISM
     Route: 048
  2. RIVAROXABAN [Suspect]
     Indication: ATRIAL FIBRILLATION
     Route: 048
  3. RT-PA [Suspect]
     Indication: THROMBOLYSIS
     Route: 042

REACTIONS (4)
  - Ischaemic stroke [Recovered/Resolved with Sequelae]
  - Haemorrhagic transformation stroke [Unknown]
  - Haematuria [Recovered/Resolved]
  - Drug ineffective [Unknown]
